FAERS Safety Report 9250947 (Version 1)
Quarter: 2013Q2

REPORT INFORMATION
  Report Type: Spontaneous
  Country: AU (occurrence: AU)
  Receive Date: 20130424
  Receipt Date: 20130424
  Transmission Date: 20140414
  Serious: Yes (Other)
  Sender: FDA-Public Use
  Company Number: PHHY2013AU039568

PATIENT
  Sex: Female

DRUGS (6)
  1. ACLASTA [Suspect]
     Dosage: UNK UKN, UNK
     Route: 042
  2. CEREBREX [Suspect]
  3. FEMARA [Concomitant]
  4. ATROVENT [Concomitant]
  5. NEXIUM//ESOMEPRAZOLE MAGNESIUM [Concomitant]
  6. NORSPAN//NORFLOXACIN [Concomitant]

REACTIONS (3)
  - Haematemesis [Unknown]
  - Myalgia [Unknown]
  - Pyrexia [Unknown]
